FAERS Safety Report 17572018 (Version 2)
Quarter: 2025Q2

REPORT INFORMATION
  Report Type: Spontaneous
  Country: DE (occurrence: DE)
  Receive Date: 20200323
  Receipt Date: 20250411
  Transmission Date: 20250716
  Serious: Yes (Death, Congenital Anomaly, Other)
  Sender: AUROBINDO
  Company Number: DE-009507513-2002DEU004549

PATIENT

DRUGS (2)
  1. LOSARTAN [Suspect]
     Active Substance: LOSARTAN
     Indication: Product used for unknown indication
     Route: 064
  2. ENALAPRIL [Suspect]
     Active Substance: ENALAPRIL
     Indication: Product used for unknown indication
     Route: 064

REACTIONS (3)
  - Death neonatal [Fatal]
  - Foetal renal impairment [Unknown]
  - Foetal exposure during pregnancy [Recovered/Resolved]
